FAERS Safety Report 9370071 (Version 1)
Quarter: 2013Q2

REPORT INFORMATION
  Report Type: Report from Study
  Country: GB (occurrence: GB)
  Receive Date: 20130626
  Receipt Date: 20130626
  Transmission Date: 20140414
  Serious: Yes (Death)
  Sender: FDA-Public Use
  Company Number: PHHO2013GB008416

PATIENT
  Age: 66 Year
  Sex: Male

DRUGS (1)
  1. DICLOFENAC [Suspect]
     Indication: OSTEOARTHRITIS
     Dosage: 50 MG, BID
     Route: 048
     Dates: start: 20001004

REACTIONS (1)
  - Sudden death [Fatal]
